FAERS Safety Report 6745553-3 (Version None)
Quarter: 2010Q2

REPORT INFORMATION
  Report Type: 
  Country: None (occurrence: None)
  Receive Date: 20100526
  Receipt Date: 20100526
  Transmission Date: 20101027
  Serious: No
  Sender: FDA-Public Use
  Company Number: None

PATIENT
  Sex: Female
  Weight: 61.2 kg

DRUGS (3)
  1. CARBOPLATIN [Suspect]
     Dosage: 627 MG
     Dates: end: 20100414
  2. DOCETAXEL [Suspect]
     Dosage: 125 MG
     Dates: end: 20100414
  3. PACLITAXEL [Suspect]
     Dosage: 100 MG
     Dates: end: 20100421

REACTIONS (1)
  - NEUTROPENIA [None]
